FAERS Safety Report 10272473 (Version 2)
Quarter: 2014Q3

REPORT INFORMATION
  Report Type: Spontaneous
  Country: US (occurrence: None)
  Receive Date: 20140627
  Receipt Date: 20140805
  Transmission Date: 20150326
  Serious: Yes (Hospitalization)
  Sender: FDA-Public Use
  Company Number: US-H14001-14-00132

PATIENT
  Age: 64 Year
  Sex: Male

DRUGS (26)
  1. CRESTOR (ROSUVASTATIN CALCIUM) (UNKNOWN) (ROSUVASTATIN CALCIUM) [Concomitant]
  2. FERROUS SULFATE (FERROUS SULFATE) (UNKNOWN) (FERROUS SULFATE)? [Concomitant]
  3. ANTIVERT (MECLOZINE HYDORCHLORIDE) (UNKNOWN) (MECLOZINE HYDROCHLORIDE) ? [Concomitant]
  4. ISONIAZID. [Suspect]
     Active Substance: ISONIAZID
     Indication: LATENT TUBERCULOSIS
     Route: 048
  5. PLAVIX [Suspect]
     Active Substance: CLOPIDOGREL BISULFATE
     Indication: CARDIOVASCULAR DISORDER
     Route: 048
  6. TRUVADA (TRUVADA) (TABLETS) (EMTRICITABINE, TENOFOVIR DISOPROXIL FUMARATE) [Concomitant]
  7. ASPIRIN (ACETYLSALICYLIC ACID) (325, MILLIGRAM, TABLETS) (ACETYLSALICYLIC ACID) [Concomitant]
  8. FLOMAX (TAMSULOSIN HYDROCHLORIDE) (UNKNOWN) (TAMSULOSIN HYDROCHLORIDE)? [Concomitant]
  9. NITROGLYCERIN (GLYCERYL TRINTRATE) [Concomitant]
  10. NORVIR [Suspect]
     Active Substance: RITONAVIR
     Indication: HIV INFECTION
     Route: 048
  11. COREG (CARVEDILOL) (UNKNOWN)  (CARVEDILOL) [Concomitant]
  12. ZOLOFT (SERTRALINE HYDROCHLORIDE) (UNKNOWN) (SERTRALINE HYDROCHLORIDE) [Concomitant]
  13. TRAZODONE [Concomitant]
     Active Substance: TRAZODONE HYDROCHLORIDE
  14. VENTOLIN [Concomitant]
     Active Substance: ALBUTEROL SULFATE
  15. SPIRIVA (TIOTROPIUM BROMIDE) (UNKNOWN) (TIOTROPIUM BROMIDE)? [Concomitant]
  16. MOTRIN (IBUPROFEN) (UNKNOWN) (IBUPROFEN)? [Concomitant]
  17. DIOVAN (VALSARTAN) (UNKNOWN) (VALSARTAN) [Concomitant]
  18. PREZISTA (DARUNAVIR ETHANOLATE) (UNKNOWN) (DARUNAVIR ETHANOLATE) [Concomitant]
  19. NEXIUM (ESOMEPRAZOLE MAGNESIUM) (UNKNOWN) (ESOMEPRAZOLE MAGNESIUM)? [Concomitant]
  20. ADVAIR DISKUS (FLUTICASONE W/SALMETEROL) (INHALANT) (SALMETEROL, FLUTICASONE)? [Concomitant]
  21. VITAMIN B6 (PYRIDOXINE HYDROCHLORIDE) (UNKNOWN) (PYRIDOXINE HYDROCHLORIDE) [Concomitant]
  22. NOVOLOG FLEXPEN (INSULIN ASPART) (SOLUTION) (INSULIN ASPART) [Concomitant]
  23. ALLEGRA (FEXOFENADINE HYDROCHLORIDE) (UNKNOWN) (FEXOFENADINE HYDROCHLORIDE) ? [Concomitant]
  24. KLONOPIN (CLONAZEPAM) (UNKNOWN) (CLONAZEPAM) [Concomitant]
  25. LUNESTA (ESZOPICLONE) (UNKNOWN) (ESZOPICLONE0 [Concomitant]
  26. LANTUS (INSULIN GLARGINE) (SOLUTION) (INSULIN GLARGINE)? [Concomitant]

REACTIONS (11)
  - Fatigue [None]
  - Acute coronary syndrome [None]
  - Chest pain [None]
  - Troponin I increased [None]
  - Chronic obstructive pulmonary disease [None]
  - Acute myocardial infarction [None]
  - Dyspnoea [None]
  - Blood creatine phosphokinase increased [None]
  - Drug interaction [None]
  - Blood creatine phosphokinase MB increased [None]
  - Pneumonia [None]
